FAERS Safety Report 20169126 (Version 1)
Quarter: 2021Q4

REPORT INFORMATION
  Report Type: Spontaneous
  Country: CA (occurrence: CA)
  Receive Date: 20211210
  Receipt Date: 20211210
  Transmission Date: 20220303
  Serious: Yes (Death, Hospitalization)
  Sender: FDA-Public Use
  Company Number: CA-JNJFOC-20210858718

PATIENT
  Age: 78 Year
  Sex: Male

DRUGS (5)
  1. UPTRAVI [Suspect]
     Active Substance: SELEXIPAG
     Indication: Pulmonary arterial hypertension
     Route: 048
  2. UPTRAVI [Suspect]
     Active Substance: SELEXIPAG
     Route: 048
     Dates: start: 20211012
  3. AMBRISENTAN [Suspect]
     Active Substance: AMBRISENTAN
     Indication: Pulmonary arterial hypertension
     Route: 048
     Dates: start: 20210225
  4. ADCIRCA [Suspect]
     Active Substance: TADALAFIL
     Indication: Pulmonary arterial hypertension
     Route: 065
     Dates: start: 20161025
  5. ADCIRCA [Suspect]
     Active Substance: TADALAFIL
     Route: 065
     Dates: start: 20210225

REACTIONS (11)
  - Death [Fatal]
  - Hospitalisation [Unknown]
  - Neck pain [Unknown]
  - Headache [Unknown]
  - Musculoskeletal chest pain [Recovering/Resolving]
  - Cough [Recovering/Resolving]
  - Back disorder [Recovering/Resolving]
  - Pruritus [Unknown]
  - Ear pain [Unknown]
  - Toothache [Unknown]
  - Back pain [Unknown]

NARRATIVE: CASE EVENT DATE: 20210823
